FAERS Safety Report 7944639-5 (Version None)
Quarter: 2011Q4

REPORT INFORMATION
  Report Type: 
  Country: None (occurrence: None)
  Receive Date: 20111129
  Receipt Date: 20111123
  Transmission Date: 20120403
  Serious: Yes (Hospitalization)
  Sender: FDA-Public Use
  Company Number: US-JNJFOC-20111111032

PATIENT
  Sex: Female

DRUGS (3)
  1. NUCYNTA [Suspect]
     Indication: PAIN
     Route: 048
     Dates: start: 20111001
  2. ULTRAM [Suspect]
     Indication: PAIN
     Route: 048
     Dates: start: 20110101, end: 20110101
  3. UNSPECIFIED BIRTH CONTROL PILLS [Suspect]
     Indication: PRODUCT USED FOR UNKNOWN INDICATION
     Route: 048
     Dates: start: 20110101, end: 20110101

REACTIONS (3)
  - ULCER [None]
  - MIGRAINE [None]
  - WITHDRAWAL SYNDROME [None]
